FAERS Safety Report 8095652-1 (Version None)
Quarter: 2012Q1

REPORT INFORMATION
  Report Type: 
  Country: None (occurrence: None)
  Receive Date: 20120129
  Receipt Date: 20111216
  Transmission Date: 20120608
  Serious: No
  Sender: FDA-Public Use
  Company Number: US-ABBOTT-11P-163-0883863-00

PATIENT
  Sex: Female
  Weight: 64.922 kg

DRUGS (2)
  1. UNKNOWN MEDICATIONS [Concomitant]
     Indication: PRODUCT USED FOR UNKNOWN INDICATION
  2. HUMIRA [Suspect]
     Indication: RHEUMATOID ARTHRITIS
     Dates: start: 20111201

REACTIONS (6)
  - INCORRECT ROUTE OF DRUG ADMINISTRATION [None]
  - INCORRECT DOSE ADMINISTERED [None]
  - LOCAL SWELLING [None]
  - PAIN IN EXTREMITY [None]
  - INJECTION SITE HAEMORRHAGE [None]
  - INJECTION SITE HAEMATOMA [None]
